FAERS Safety Report 5444121-3 (Version None)
Quarter: 2007Q3

REPORT INFORMATION
  Report Type: 
  Country: None (occurrence: None)
  Receive Date: 20070831
  Receipt Date: 20070817
  Transmission Date: 20080115
  Serious: Yes (Hospitalization)
  Sender: FDA-Public Use
  Company Number: 17285

PATIENT
  Age: 49 Year
  Sex: Female

DRUGS (6)
  1. CARBOPLATIN [Suspect]
     Dates: start: 20070223, end: 20070223
  2. PAXENE [Suspect]
     Indication: OVARIAN CANCER
     Dates: start: 20070223, end: 20070223
  3. MOPRAL [Concomitant]
  4. TRILEPTAL [Concomitant]
  5. DEPAKENE [Concomitant]
  6. PARACETAMOL [Concomitant]

REACTIONS (4)
  - CHEST DISCOMFORT [None]
  - RASH [None]
  - SENSE OF OPPRESSION [None]
  - VASODILATATION [None]
